FAERS Safety Report 7341090-6 (Version None)
Quarter: 2011Q1

REPORT INFORMATION
  Report Type: 
  Country: None (occurrence: None)
  Receive Date: 20110228
  Receipt Date: 20110214
  Transmission Date: 20110831
  Serious: Yes (Other)
  Sender: FDA-Public Use
  Company Number: DSU-2011-01130

PATIENT
  Age: 69 Year
  Sex: Male
  Weight: 68.0396 kg

DRUGS (1)
  1. AZOR [Suspect]
     Indication: HYPERTENSION
     Dosage: 15/20MG (QD), PER ORAL
     Route: 048
     Dates: start: 20090101

REACTIONS (2)
  - PERSONALITY CHANGE [None]
  - COELIAC DISEASE [None]
